FAERS Safety Report 9627148 (Version 1)
Quarter: 2013Q4

REPORT INFORMATION
  Report Type: Report from Study
  Country: US (occurrence: US)
  Receive Date: 20131016
  Receipt Date: 20131016
  Transmission Date: 20140711
  Serious: Yes (Hospitalization, Other)
  Sender: FDA-Public Use
  Company Number: US-US-EMD SERONO, INC.-7242832

PATIENT
  Age: 43 Year
  Sex: Female

DRUGS (1)
  1. REBIF [Suspect]
     Indication: MULTIPLE SCLEROSIS
     Route: 058
     Dates: start: 20130430

REACTIONS (5)
  - Vertigo [Unknown]
  - Cartilage injury [Recovering/Resolving]
  - Fall [Unknown]
  - Ligament sprain [Recovered/Resolved]
  - Ataxia [Unknown]
